FAERS Safety Report 25488827 (Version 1)
Quarter: 2025Q2

REPORT INFORMATION
  Report Type: Spontaneous
  Country: JP (occurrence: JP)
  Receive Date: 20250627
  Receipt Date: 20250627
  Transmission Date: 20250716
  Serious: Yes (Hospitalization)
  Sender: PFIZER
  Company Number: JP-PFIZER INC-PV202500073591

PATIENT
  Age: 82 Year
  Sex: Female
  Weight: 36.6 kg

DRUGS (18)
  1. RHEUMATREX [Suspect]
     Active Substance: METHOTREXATE SODIUM
     Indication: Rheumatoid arthritis
     Route: 048
     Dates: end: 20220719
  2. FOLIC ACID [Concomitant]
     Active Substance: FOLIC ACID
     Dosage: ONCE A WEEK, CONSECUTIVELY AFTER THE PATIENT WAS HOSPITALISED
     Route: 048
     Dates: end: 20220808
  3. REBAMIPIDE [Concomitant]
     Active Substance: REBAMIPIDE
     Route: 048
     Dates: end: 20220720
  4. NORVASC [Concomitant]
     Active Substance: AMLODIPINE BESYLATE
     Route: 048
     Dates: end: 20220720
  5. RINDERON V [Concomitant]
     Active Substance: BETAMETHASONE VALERATE
     Dates: start: 20220728
  6. HEPARINOID NICHIIKO [Concomitant]
     Dates: start: 20220728
  7. LOSARTAN POTASSIUM [Concomitant]
     Active Substance: LOSARTAN POTASSIUM
     Route: 048
     Dates: start: 20220803, end: 20220808
  8. TORASEMIDE OD TE [Concomitant]
     Route: 048
     Dates: start: 20220803
  9. MAGNESIUM OXIDE [Concomitant]
     Active Substance: MAGNESIUM OXIDE
     Route: 048
     Dates: start: 20220805
  10. ESZOPICLONE [Concomitant]
     Active Substance: ESZOPICLONE
     Route: 048
     Dates: start: 20220805
  11. AMLODIPINE [Concomitant]
     Active Substance: AMLODIPINE BESYLATE
     Route: 048
     Dates: start: 20220806
  12. CEFAZOLIN SODIUM [Concomitant]
     Active Substance: CEFAZOLIN SODIUM
     Indication: Cellulitis
     Route: 042
     Dates: start: 20220720, end: 20220729
  13. POLARAMINE [Concomitant]
     Active Substance: DEXCHLORPHENIRAMINE MALEATE
     Route: 042
     Dates: start: 20220721, end: 20220727
  14. FUROSEMIDE TOWA [FUROSEMIDE SODIUM] [Concomitant]
     Route: 042
     Dates: start: 20220721, end: 20220727
  15. FILGRASTIM [Concomitant]
     Active Substance: FILGRASTIM
     Route: 042
     Dates: start: 20220723, end: 20220727
  16. LEUCOVORIN [Concomitant]
     Active Substance: LEUCOVORIN\LEUCOVORIN CALCIUM
     Route: 042
     Dates: start: 20220720, end: 20220727
  17. FUROSEMIDE [Concomitant]
     Active Substance: FUROSEMIDE
     Route: 042
     Dates: start: 20220722, end: 20220727
  18. DARBEPOETIN ALFA [Concomitant]
     Active Substance: DARBEPOETIN ALFA
     Route: 058
     Dates: start: 20220807

REACTIONS (3)
  - Myelodysplastic syndrome with excess blasts [Recovered/Resolved]
  - Folate deficiency [Recovered/Resolved]
  - Myelosuppression [Recovered/Resolved]

NARRATIVE: CASE EVENT DATE: 20220720
